FAERS Safety Report 20712415 (Version 7)
Quarter: 2022Q4

REPORT INFORMATION
  Report Type: Report from Study
  Country: CN (occurrence: CN)
  Receive Date: 20220415
  Receipt Date: 20221123
  Transmission Date: 20230112
  Serious: Yes (Hospitalization, Other)
  Sender: FDA-Public Use
  Company Number: CN-BRISTOL-MYERS SQUIBB COMPANY-BMS-2022-019519

PATIENT
  Age: 68 Year
  Sex: Male
  Weight: 71 kg

DRUGS (9)
  1. CARBOPLATIN [Suspect]
     Active Substance: CARBOPLATIN
     Indication: Non-small cell lung cancer
     Route: 065
     Dates: start: 20210903, end: 20210903
  2. CARBOPLATIN [Suspect]
     Active Substance: CARBOPLATIN
     Route: 065
     Dates: start: 20211103, end: 20211103
  3. PACLITAXEL [Suspect]
     Active Substance: PACLITAXEL
     Indication: Non-small cell lung cancer
     Route: 065
     Dates: start: 20210903
  4. PACLITAXEL [Suspect]
     Active Substance: PACLITAXEL
     Route: 065
     Dates: start: 20211103, end: 20211103
  5. METHYLCOBALAMIN [Concomitant]
     Active Substance: METHYLCOBALAMIN
     Indication: Product used for unknown indication
     Dosage: 1 DOSAGE FORM = 3 UNIT NOS
     Route: 048
     Dates: start: 20211014, end: 20220131
  6. AMPICILLIN [Concomitant]
     Active Substance: AMPICILLIN
     Indication: Prophylaxis
     Route: 048
     Dates: start: 20211220, end: 20220131
  7. ACETAMINOPHEN\TRAMADOL HYDROCHLORIDE [Concomitant]
     Active Substance: ACETAMINOPHEN\TRAMADOL HYDROCHLORIDE
     Indication: Product used for unknown indication
     Dosage: 1DF=3 UNITS
     Route: 048
     Dates: start: 20220105, end: 20220131
  8. CELECOXIB [Concomitant]
     Active Substance: CELECOXIB
     Indication: Product used for unknown indication
     Route: 048
     Dates: start: 20220105, end: 20220131
  9. ORYZANOL [Concomitant]
     Active Substance: GAMMA ORYZANOL
     Indication: Hypoaesthesia
     Dosage: 1 DOSAGE FORM-6 UNITS
     Route: 048
     Dates: start: 20211201, end: 20220131

REACTIONS (6)
  - Pneumocystis jirovecii pneumonia [Recovered/Resolved]
  - Platelet count decreased [Recovered/Resolved]
  - Interstitial lung disease [Recovered/Resolved with Sequelae]
  - Diabetes mellitus [Recovered/Resolved]
  - Immune-mediated hypophysitis [Recovered/Resolved]
  - Pneumonia viral [Recovered/Resolved]

NARRATIVE: CASE EVENT DATE: 20220131
